FAERS Safety Report 11079666 (Version 1)
Quarter: 2015Q2

REPORT INFORMATION
  Report Type: Spontaneous
  Country: US (occurrence: US)
  Receive Date: 20150430
  Receipt Date: 20150430
  Transmission Date: 20150821
  Serious: Yes (Other)
  Sender: FDA-Public Use
  Company Number: US-ASTRAZENECA-2015SE37864

PATIENT
  Sex: Female
  Weight: 84.4 kg

DRUGS (15)
  1. LEVOXYL [Concomitant]
     Active Substance: LEVOTHYROXINE SODIUM
     Route: 048
  2. MULTIVITAMIN THERAPEUTIC WITH MINERALS [Concomitant]
  3. LOMOTIL [Concomitant]
     Active Substance: ATROPINE SULFATE\DIPHENOXYLATE HYDROCHLORIDE
     Dosage: 2.5-0.025 MG TWICE DAILY AS NEEDED
  4. ZYRTEC [Concomitant]
     Active Substance: CETIRIZINE HYDROCHLORIDE
  5. ASPIRIN. [Concomitant]
     Active Substance: ASPIRIN
  6. SEROQUEL [Suspect]
     Active Substance: QUETIAPINE FUMARATE
     Dosage: ONE TABLET EACH MORNING AND THREE AT BEDTIME
     Route: 048
  7. NORVASC [Concomitant]
     Active Substance: AMLODIPINE BESYLATE
  8. LYRICA [Concomitant]
     Active Substance: PREGABALIN
  9. K-DUR [Concomitant]
     Active Substance: POTASSIUM CHLORIDE
     Route: 048
  10. K TAB [Concomitant]
  11. ZESTRIL [Concomitant]
     Active Substance: LISINOPRIL
     Route: 048
  12. PRAZOSIN [Concomitant]
     Active Substance: PRAZOSIN
     Indication: ABNORMAL DREAMS
  13. DETROL [Concomitant]
     Active Substance: TOLTERODINE TARTRATE
  14. XANAX [Concomitant]
     Active Substance: ALPRAZOLAM
     Indication: ANXIETY
     Dosage: 1 TABLET TWICE DAILY AS NEEDED
  15. FLONASE [Concomitant]
     Active Substance: FLUTICASONE PROPIONATE

REACTIONS (7)
  - Anaphylactic reaction [Unknown]
  - Pain [Unknown]
  - Dyspnoea [Unknown]
  - Abdominal discomfort [Unknown]
  - Seizure [Unknown]
  - Anxiety [Unknown]
  - Urticaria [Unknown]
